FAERS Safety Report 8915754 (Version 1)
Quarter: 2012Q4

REPORT INFORMATION
  Report Type: 
  Country: IR (occurrence: IR)
  Receive Date: 20121119
  Receipt Date: 20121119
  Transmission Date: 20130627
  Serious: Yes (Hospitalization, Other)
  Sender: FDA-Public Use
  Company Number: IR-ROXANE LABORATORIES, INC.-2012-RO-02382RO

PATIENT
  Age: 40 Year
  Sex: Male

DRUGS (3)
  1. MYCOPHENOLATE MOFETIL [Suspect]
     Indication: LIVER TRANSPLANT
  2. CYCLOSPORINE [Suspect]
     Indication: LIVER TRANSPLANT
  3. PREDNISOLONE [Suspect]
     Indication: LIVER TRANSPLANT

REACTIONS (2)
  - Zygomycosis [Recovered/Resolved]
  - Arterial injury [Recovered/Resolved]
